FAERS Safety Report 6782522-1 (Version None)
Quarter: 2010Q2

REPORT INFORMATION
  Report Type: 
  Country: None (occurrence: None)
  Receive Date: 20100616
  Receipt Date: 20100602
  Transmission Date: 20101027
  Serious: Yes (Life-Threatening, Other)
  Sender: FDA-Public Use
  Company Number: 1-22853999

PATIENT
  Age: 20 Year
  Sex: Male
  Weight: 44.9061 kg

DRUGS (1)
  1. TRAMADOL INJECTABLE [Suspect]
     Indication: PROCEDURAL PAIN
     Dosage: 50 MG, ONCE, INTRAVENOUS
     Route: 042

REACTIONS (4)
  - APNOEA [None]
  - OXYGEN SATURATION DECREASED [None]
  - RESPIRATORY DEPRESSION [None]
  - UNRESPONSIVE TO STIMULI [None]
